FAERS Safety Report 23442304 (Version 1)
Quarter: 2024Q1

REPORT INFORMATION
  Report Type: Spontaneous
  Country: GB (occurrence: GB)
  Receive Date: 20240125
  Receipt Date: 20240125
  Transmission Date: 20240410
  Serious: Yes (Other)
  Sender: FDA-Public Use
  Company Number: None

PATIENT
  Age: 52 Year
  Sex: Male
  Weight: 85 kg

DRUGS (9)
  1. SPIRONOLACTONE [Suspect]
     Active Substance: SPIRONOLACTONE
     Dosage: WATER TABLET - TAKE EVERY MORNING
     Route: 065
     Dates: start: 20231212, end: 20240119
  2. THIAMINE [Concomitant]
     Active Substance: THIAMINE
     Dosage: EVERY MORNING
     Route: 065
     Dates: start: 20240109
  3. FUROSEMIDE [Concomitant]
     Active Substance: FUROSEMIDE
     Dosage: EACH MORNING FOR ONE WEEK AND I...
     Route: 065
     Dates: start: 20240119
  4. CHOLECALCIFEROL [Concomitant]
     Active Substance: CHOLECALCIFEROL
     Dosage: AS DIRECTED
     Route: 065
     Dates: start: 20240116
  5. DIETARY SUPPLEMENT [Concomitant]
     Active Substance: DIETARY SUPPLEMENT
     Dosage: BOTTLE
     Route: 065
     Dates: start: 20240109
  6. CARVEDILOL [Concomitant]
     Active Substance: CARVEDILOL
     Dates: start: 20231207
  7. CLOTRIMAZOLE [Concomitant]
     Active Substance: CLOTRIMAZOLE
     Dosage: APPLY 2-3 TIMES/DAY
     Route: 065
     Dates: start: 20231212, end: 20240109
  8. OMEPRAZOLE [Concomitant]
     Active Substance: OMEPRAZOLE
     Dosage: TO REDUCE STOMACH ACID
     Dates: start: 20231128, end: 20240102
  9. FOLIC ACID [Concomitant]
     Active Substance: FOLIC ACID
     Dosage: EVERY MORNING (REVIEW ONGOING N...
     Route: 065
     Dates: start: 20240116

REACTIONS (2)
  - Pruritus [Unknown]
  - Blister [Recovered/Resolved]
